FAERS Safety Report 15559924 (Version 1)
Quarter: 2018Q4

REPORT INFORMATION
  Report Type: Spontaneous
  Country: US (occurrence: US)
  Receive Date: 20181023
  Receipt Date: 20181023
  Transmission Date: 20190205
  Serious: Yes (Life-Threatening)
  Sender: FDA-Public Use
  Company Number: None

PATIENT
  Age: 75 Year
  Sex: Male
  Weight: 91.3 kg

DRUGS (12)
  1. DIGOXIN. [Suspect]
     Active Substance: DIGOXIN
     Indication: ATRIAL FIBRILLATION
     Dosage: RECENT
     Route: 048
  2. GLUCOTROL [Concomitant]
     Active Substance: GLIPIZIDE
  3. COLCHICINE. [Suspect]
     Active Substance: COLCHICINE
     Indication: ATRIAL FIBRILLATION
     Dosage: ?          OTHER DOSE:0.6MG;OTHER FREQUENCY:BID PRN; CHRONIC?
     Route: 048
  4. ECOTRIN [Concomitant]
     Active Substance: ASPIRIN
  5. LASIX [Concomitant]
     Active Substance: FUROSEMIDE
  6. PRILOSEC [Concomitant]
     Active Substance: OMEPRAZOLE MAGNESIUM
  7. ZOCOR [Concomitant]
     Active Substance: SIMVASTATIN
  8. WARFARIN [Concomitant]
     Active Substance: WARFARIN
  9. LOTRIMIN [Concomitant]
     Active Substance: CLOTRIMAZOLE
  10. ULTRAM [Concomitant]
     Active Substance: TRAMADOL HYDROCHLORIDE
  11. NOVOLOG [Concomitant]
     Active Substance: INSULIN ASPART
  12. IMDUR [Concomitant]
     Active Substance: ISOSORBIDE MONONITRATE

REACTIONS (5)
  - Bradycardia [None]
  - Acute kidney injury [None]
  - Drug interaction [None]
  - Hyperkalaemia [None]
  - Toxicity to various agents [None]
